FAERS Safety Report 5097785-0 (Version None)
Quarter: 2006Q3

REPORT INFORMATION
  Report Type: 
  Country: None (occurrence: None)
  Receive Date: 20060825
  Receipt Date: 20060814
  Transmission Date: 20061208
  Serious: Yes (Death, Other)
  Sender: FDA-Public Use
  Company Number: USA-2006-0024948

PATIENT
  Age: 17 Year
  Sex: Female

DRUGS (3)
  1. OXYCONTIN [Suspect]
     Indication: DRUG ABUSER
  2. ECSTASY (MDMA 3,4-MEHYLELENEDIOXYMETHAMPHETAMINE) [Suspect]
     Indication: DRUG ABUSER
  3. TETRAHYDROCANNABINOL (TETRAHYDROCANNABINOL) [Suspect]
     Indication: DRUG ABUSER

REACTIONS (5)
  - ABNORMAL BEHAVIOUR [None]
  - EMOTIONAL DISORDER [None]
  - SENSORY DISTURBANCE [None]
  - SUBSTANCE ABUSE [None]
  - VICTIM OF HOMICIDE [None]
